FAERS Safety Report 14038860 (Version 16)
Quarter: 2019Q4

REPORT INFORMATION
  Report Type: Report from Study
  Country: IL (occurrence: IL)
  Receive Date: 20171004
  Receipt Date: 20191230
  Transmission Date: 20200122
  Serious: Yes (Hospitalization)
  Sender: FDA-Public Use
  Company Number: IL-ROCHE-2001500

PATIENT
  Age: 32 Year
  Sex: Female
  Weight: 79 kg

DRUGS (21)
  1. PACLITAXEL. [Suspect]
     Active Substance: PACLITAXEL
     Indication: TRIPLE NEGATIVE BREAST CANCER
     Dosage: MOST RECENT DOSE (90 MG/M2) ON 14/SEP/2017
     Route: 042
     Dates: start: 20170914, end: 20170924
  2. PRAMIN [METOCLOPRAMIDE HYDROCHLORIDE] [Concomitant]
     Active Substance: METOCLOPRAMIDE HYDROCHLORIDE
     Route: 065
     Dates: start: 20170916, end: 20170917
  3. ZOFRAN [Concomitant]
     Active Substance: ONDANSETRON HYDROCHLORIDE
     Route: 065
     Dates: start: 20170918
  4. TRAMADOL. [Concomitant]
     Active Substance: TRAMADOL
  5. SALINE [SODIUM CHLORIDE] [Concomitant]
     Active Substance: SODIUM CHLORIDE
     Dosage: 1000 CC
     Route: 042
     Dates: start: 20170926, end: 20170927
  6. OXYCONTIN [Concomitant]
     Active Substance: OXYCODONE HYDROCHLORIDE
     Route: 065
     Dates: start: 20170905, end: 20171025
  7. CLEXANE [Concomitant]
     Active Substance: ENOXAPARIN SODIUM
     Route: 065
     Dates: start: 20171003, end: 20171003
  8. LORIVAN [Concomitant]
     Active Substance: LORAZEPAM
     Route: 065
     Dates: start: 20171003, end: 20171003
  9. ESOMEPRAZOLE. [Concomitant]
     Active Substance: ESOMEPRAZOLE MAGNESIUM
     Route: 065
     Dates: start: 20171003, end: 20171103
  10. STOPIT [Concomitant]
     Route: 065
     Dates: start: 20170915, end: 20171127
  11. ATEZOLIZUMAB. [Suspect]
     Active Substance: ATEZOLIZUMAB
     Indication: TRIPLE NEGATIVE BREAST CANCER
     Dosage: MOST RECENT DOSE ON 14/SEP/2017
     Route: 042
     Dates: start: 20170914
  12. AUGMENTIN [Concomitant]
     Active Substance: AMOXICILLIN\CLAVULANATE POTASSIUM
     Route: 065
     Dates: start: 20170924, end: 20170926
  13. AHISTON [Concomitant]
     Active Substance: CHLORPHENIRAMINE MALEATE
     Indication: PROPHYLAXIS
     Route: 065
     Dates: start: 20170914, end: 20170914
  14. SALINE [SODIUM CHLORIDE] [Concomitant]
     Active Substance: SODIUM CHLORIDE
     Dosage: 1000 CC
     Route: 042
     Dates: start: 20170917, end: 20170918
  15. PRAMIN [METOCLOPRAMIDE HYDROCHLORIDE] [Concomitant]
     Active Substance: METOCLOPRAMIDE HYDROCHLORIDE
     Route: 065
     Dates: start: 20170917, end: 20171226
  16. ADVIL [IBUPROFEN] [Concomitant]
     Active Substance: IBUPROFEN
     Route: 065
     Dates: start: 20170907
  17. LOSEC [Concomitant]
     Active Substance: OMEPRAZOLE
     Route: 065
     Dates: start: 20170927, end: 20170927
  18. CIPROXIN [CIPROFLOXACIN] [Concomitant]
     Route: 065
     Dates: start: 20170924, end: 20170926
  19. MODAL [Concomitant]
     Route: 030
     Dates: start: 20170918, end: 20170918
  20. TARGIN [Concomitant]
     Active Substance: NALOXONE HYDROCHLORIDE\OXYCODONE HYDROCHLORIDE
     Route: 065
     Dates: start: 20171005
  21. ZANTAC [Concomitant]
     Active Substance: RANITIDINE HYDROCHLORIDE
     Indication: PROPHYLAXIS
     Route: 065
     Dates: start: 20170914, end: 20170914

REACTIONS (1)
  - Febrile neutropenia [Recovered/Resolved]

NARRATIVE: CASE EVENT DATE: 20170926
